FAERS Safety Report 9443343 (Version 2)
Quarter: 2013Q3

REPORT INFORMATION
  Report Type: Spontaneous
  Country: US (occurrence: US)
  Receive Date: 20130806
  Receipt Date: 20130815
  Transmission Date: 20140515
  Serious: Yes (Hospitalization)
  Sender: FDA-Public Use
  Company Number: US-GLAXOSMITHKLINE-A1036488A

PATIENT
  Age: 66 Year
  Sex: Female

DRUGS (1)
  1. VOTRIENT [Suspect]
     Indication: PRODUCT USED FOR UNKNOWN INDICATION
     Dosage: 800MG PER DAY
     Route: 065
     Dates: start: 20130627, end: 20130723

REACTIONS (13)
  - Staphylococcal infection [Unknown]
  - Diarrhoea [Unknown]
  - Weight decreased [Unknown]
  - Dysgeusia [Unknown]
  - Decreased appetite [Unknown]
  - Nausea [Unknown]
  - Dehydration [Unknown]
  - Asthenia [Unknown]
  - Gait disturbance [Unknown]
  - Purpura [Unknown]
  - Wound [Unknown]
  - Thermal burn [Unknown]
  - Adverse drug reaction [Unknown]
